FAERS Safety Report 12210938 (Version 2)
Quarter: 2016Q2

REPORT INFORMATION
  Report Type: Report from Study
  Country: BR (occurrence: BR)
  Receive Date: 20160325
  Receipt Date: 20160407
  Transmission Date: 20160815
  Serious: Yes (Hospitalization, Other)
  Sender: FDA-Public Use
  Company Number: PHHY2016BR038623

PATIENT
  Age: 47 Year
  Sex: Female
  Weight: 66 kg

DRUGS (2)
  1. DIOVAN HCT [Suspect]
     Active Substance: HYDROCHLOROTHIAZIDE\VALSARTAN
     Indication: HYPERTENSION
     Dosage: 1 DF, QD (HYDROCHLOROTHIAZIDE 12.5 MG AND VALSARTAN 160 MG, (IN THE MORNING)
     Route: 048
  2. DIOVAN HCT [Suspect]
     Active Substance: HYDROCHLOROTHIAZIDE\VALSARTAN
     Dosage: 1 DF, QD (HYDROCHLOROTHIAZIDE 12.5 MG AND VALSARTAN 320 MG)
     Route: 048

REACTIONS (14)
  - Vision blurred [Recovering/Resolving]
  - Depression [Recovering/Resolving]
  - Labyrinthitis [Recovering/Resolving]
  - Drug ineffective [Unknown]
  - Blood pressure increased [Recovered/Resolved]
  - Crying [Unknown]
  - Blood pressure inadequately controlled [Recovering/Resolving]
  - Inner ear disorder [Unknown]
  - Coordination abnormal [Recovered/Resolved]
  - Glaucoma [Not Recovered/Not Resolved]
  - Fear [Recovering/Resolving]
  - Mobility decreased [Recovering/Resolving]
  - Gun shot wound [Unknown]
  - Dizziness [Recovering/Resolving]

NARRATIVE: CASE EVENT DATE: 20150225
